FAERS Safety Report 8585561-3 (Version None)
Quarter: 2012Q3

REPORT INFORMATION
  Report Type: 
  Country: None (occurrence: None)
  Receive Date: 20120810
  Receipt Date: 20120801
  Transmission Date: 20120928
  Serious: Yes (Life-Threatening)
  Sender: FDA-Public Use
  Company Number: CA-JNJFOC-20120802572

PATIENT
  Sex: Male
  Weight: 56.6 kg

DRUGS (6)
  1. BENADRYL [Concomitant]
     Route: 042
  2. HYDROCORTISONE [Concomitant]
     Route: 042
  3. REMICADE [Suspect]
     Dosage: 10 INFUSIONS
     Route: 042
     Dates: start: 20080101, end: 20090101
  4. METHOTREXATE [Concomitant]
     Route: 048
  5. TYLENOL [Concomitant]
     Route: 048
  6. REMICADE [Suspect]
     Indication: RHEUMATOID ARTHRITIS
     Route: 042
     Dates: start: 20120221

REACTIONS (4)
  - COUGH [None]
  - FLUSHING [None]
  - INFUSION RELATED REACTION [None]
  - DYSPNOEA [None]
